FAERS Safety Report 4559527-4 (Version None)
Quarter: 2005Q1

REPORT INFORMATION
  Report Type: 
  Country: None (occurrence: None)
  Receive Date: 20050124
  Receipt Date: 20041221
  Transmission Date: 20050727
  Serious: Yes (Other)
  Sender: FDA-Public Use
  Company Number: US-GLAXOSMITHKLINE-A0538262A

PATIENT
  Age: 63 Year
  Sex: Male

DRUGS (3)
  1. ROPINIROLE [Suspect]
     Indication: PARKINSON'S DISEASE
     Dosage: 20MG PER DAY
     Route: 048
     Dates: start: 20030911
  2. SINEMET [Concomitant]
     Indication: PARKINSONISM
     Dosage: 100MG FOUR TIMES PER DAY
     Route: 048
     Dates: start: 19850101, end: 20040101
  3. SINEMET [Concomitant]
     Dosage: 50MG TWICE PER DAY
     Route: 048
     Dates: start: 20040101

REACTIONS (1)
  - MALIGNANT MELANOMA [None]
